FAERS Safety Report 6519574-X (Version None)
Quarter: 2009Q4

REPORT INFORMATION
  Report Type: 
  Country: None (occurrence: None)
  Receive Date: 20091228
  Receipt Date: 20091217
  Transmission Date: 20100525
  Serious: Yes (Death, Life-Threatening)
  Sender: FDA-Public Use
  Company Number: CA-ROCHE-674112

PATIENT
  Sex: Male

DRUGS (2)
  1. BEVACIZUMAB [Suspect]
     Dosage: FREQUENCY: EVERY 2 WEEKS
     Route: 042
     Dates: start: 20090528, end: 20090723
  2. PANITUMUMAB [Suspect]
     Route: 065

REACTIONS (2)
  - DEATH [None]
  - MALIGNANT NEOPLASM PROGRESSION [None]
